FAERS Safety Report 6524564-7 (Version None)
Quarter: 2010Q1

REPORT INFORMATION
  Report Type: 
  Country: None (occurrence: None)
  Receive Date: 20100104
  Receipt Date: 20091224
  Transmission Date: 20100710
  Serious: Yes (Other)
  Sender: FDA-Public Use
  Company Number: PT-ROCHE-676670

PATIENT
  Age: 40 Year
  Sex: Female

DRUGS (2)
  1. OSELTAMIVIR [Suspect]
     Route: 048
     Dates: start: 20091017
  2. ANTIDEPRESSANTS [Concomitant]

REACTIONS (5)
  - ASTHENIA [None]
  - CONFUSIONAL STATE [None]
  - DRUG EXPOSURE DURING PREGNANCY [None]
  - FATIGUE [None]
  - HAEMOGLOBIN DECREASED [None]
